FAERS Safety Report 10437628 (Version 1)
Quarter: 2014Q3

REPORT INFORMATION
  Report Type: Spontaneous
  Country: IN (occurrence: None)
  Receive Date: 20140904
  Receipt Date: 20140904
  Transmission Date: 20150326
  Serious: Yes (Hospitalization)
  Sender: FDA-Public Use
  Company Number: NSR_01612_2014

PATIENT
  Age: 10 Month
  Sex: Female
  Weight: 6 kg

DRUGS (1)
  1. BACLOFEN. [Suspect]
     Active Substance: BACLOFEN
     Indication: DEVELOPMENTAL DELAY
     Dosage: 5 MG TID, 2 TABLETS (5 MG), MORNING, NOON, AND EVENING (NOT THE PRESCRIBED AMOUNT))

REACTIONS (11)
  - Accidental overdose [None]
  - Loss of consciousness [None]
  - Areflexia [None]
  - Sinus bradycardia [None]
  - Coma [None]
  - Blood pressure decreased [None]
  - Hypotonia [None]
  - Toxicity to various agents [None]
  - Encephalitis [None]
  - Cerebral haemorrhage [None]
  - Oxygen saturation decreased [None]
